FAERS Safety Report 12645090 (Version 4)
Quarter: 2016Q4

REPORT INFORMATION
  Report Type: Spontaneous
  Country: US (occurrence: US)
  Receive Date: 20160811
  Receipt Date: 20161103
  Transmission Date: 20170207
  Serious: Yes (Congenital Anomaly, Other)
  Sender: FDA-Public Use
  Company Number: PHHY2015US128623

PATIENT
  Age: 0 Day
  Sex: Female

DRUGS (3)
  1. ZOFRAN ODT [Suspect]
     Active Substance: ONDANSETRON HYDROCHLORIDE
     Indication: FOETAL EXPOSURE DURING PREGNANCY
     Route: 064
  2. ZOFRAN [Suspect]
     Active Substance: ONDANSETRON HYDROCHLORIDE
     Indication: FOETAL EXPOSURE DURING PREGNANCY
     Route: 064
  3. ZOFRAN [Suspect]
     Active Substance: ONDANSETRON HYDROCHLORIDE
     Indication: FOETAL EXPOSURE DURING PREGNANCY
     Route: 064

REACTIONS (8)
  - Heart valve incompetence [Unknown]
  - Foetal exposure during pregnancy [Unknown]
  - Cardiac septal defect [Unknown]
  - Premature baby [Unknown]
  - Double outlet right ventricle [Unknown]
  - Congenital coronary artery malformation [Unknown]
  - Heart disease congenital [Unknown]
  - Coarctation of the aorta [Unknown]

NARRATIVE: CASE EVENT DATE: 20050331
